FAERS Safety Report 4695426-5 (Version None)
Quarter: 2005Q2

REPORT INFORMATION
  Report Type: 
  Country: None (occurrence: None)
  Receive Date: 20050608
  Receipt Date: 20050405
  Transmission Date: 20051028
  Serious: Yes (Other)
  Sender: FDA-Public Use
  Company Number: 400984

PATIENT

DRUGS (3)
  1. ACCUTANE [Suspect]
     Indication: ACNE CYSTIC
     Dates: start: 20030815, end: 20031017
  2. ORAL CONTRACEPTIVE PILL (ORAL CONTRACEPTIVE NOS) [Concomitant]
  3. ORTHO EVRA (ETHINYL ESTRADIOL/NORELGESTROMIN) [Concomitant]

REACTIONS (2)
  - ABORTION INDUCED [None]
  - NO ADVERSE EFFECT [None]
